FAERS Safety Report 6193026-1 (Version None)
Quarter: 2009Q2

REPORT INFORMATION
  Report Type: 
  Country: None (occurrence: None)
  Receive Date: 20090518
  Receipt Date: 20090513
  Transmission Date: 20091009
  Serious: Yes (Death)
  Sender: FDA-Public Use
  Company Number: US-ELI_LILLY_AND_COMPANY-US200905002616

PATIENT
  Sex: Male

DRUGS (1)
  1. ALIMTA [Suspect]
     Dosage: 500 MG/M2, UNK
     Route: 040

REACTIONS (2)
  - DEATH [None]
  - SKIN EXFOLIATION [None]
